FAERS Safety Report 10366717 (Version 1)
Quarter: 2014Q3

REPORT INFORMATION
  Report Type: Spontaneous
  Country: US (occurrence: US)
  Receive Date: 20140806
  Receipt Date: 20140806
  Transmission Date: 20150326
  Serious: No
  Sender: FDA-Public Use
  Company Number: US-009507513-1408USA001064

PATIENT
  Sex: Female

DRUGS (5)
  1. COPEGUS [Suspect]
     Active Substance: RIBAVIRIN
     Dosage: 400 MG, QD
     Route: 048
     Dates: start: 20120114
  2. COPEGUS [Suspect]
     Active Substance: RIBAVIRIN
     Dosage: 600 MG QAM AND 400 MG QPM, BID
     Route: 048
     Dates: start: 20111212
  3. VICTRELIS [Suspect]
     Active Substance: BOCEPREVIR
     Indication: HEPATITIS C
     Dosage: 800 MG, TID
     Route: 065
  4. PEGASYS [Suspect]
     Active Substance: PEGINTERFERON ALFA-2A
     Indication: HEPATITIS C
     Dosage: 180 MICROGRAM, QW
     Route: 058
  5. COPEGUS [Suspect]
     Active Substance: RIBAVIRIN
     Indication: HEPATITIS C
     Dosage: 400 MG, BID
     Route: 048

REACTIONS (17)
  - Headache [Unknown]
  - Arthralgia [Unknown]
  - Pneumonia [Unknown]
  - Epistaxis [Unknown]
  - Infection [Unknown]
  - Cough [Unknown]
  - Abdominal distension [Unknown]
  - Anaemia [Unknown]
  - Pruritus [Unknown]
  - Fatigue [Unknown]
  - Lymphadenopathy [Unknown]
  - Diarrhoea [Unknown]
  - Neutropenia [Unknown]
  - Muscle spasms [Unknown]
  - Abdominal pain upper [Unknown]
  - Rash [Unknown]
  - Weight decreased [Unknown]
